FAERS Safety Report 10955868 (Version 1)
Quarter: 2015Q1

REPORT INFORMATION
  Report Type: Spontaneous
  Country: US (occurrence: US)
  Receive Date: 20150326
  Receipt Date: 20150326
  Transmission Date: 20150721
  Serious: Yes (Other)
  Sender: FDA-Public Use
  Company Number: US-MYLANLABS-2015M1009528

PATIENT

DRUGS (4)
  1. SANDOSTATIN [Concomitant]
     Active Substance: OCTREOTIDE ACETATE
     Indication: SECRETORY ADENOMA OF PITUITARY
     Dosage: 30 MG/MONTH
     Route: 065
  2. DEXAMETHASONE. [Suspect]
     Active Substance: DEXAMETHASONE
     Indication: SECRETORY ADENOMA OF PITUITARY
     Dosage: HIGH-DOSE
     Route: 065
  3. CAPECITABINE. [Suspect]
     Active Substance: CAPECITABINE
     Indication: SECRETORY ADENOMA OF PITUITARY
     Dosage: EACH CYCLE: 1500 MG/M2/D IN 2 DIVIDED DOSES ON D1-14 (MAX 2500 MG/D), THEN 2W OFF
     Route: 048
  4. TEMOZOLOMIDE. [Suspect]
     Active Substance: TEMOZOLOMIDE
     Indication: SECRETORY ADENOMA OF PITUITARY
     Dosage: EACH CYCLE: 150-200 MG/M2/D IN 2 DIVIDED DOSES ON D10-14, THEN 2W OFF
     Route: 048

REACTIONS (2)
  - Lymphopenia [Unknown]
  - Oral candidiasis [Unknown]
